FAERS Safety Report 20983668 (Version 2)
Quarter: 2022Q3

REPORT INFORMATION
  Report Type: Report from Study
  Country: JP (occurrence: JP)
  Receive Date: 20220620
  Receipt Date: 20220719
  Transmission Date: 20221027
  Serious: Yes (Death, Life-Threatening)
  Sender: FDA-Public Use
  Company Number: JP-JNJFOC-20200132721

PATIENT
  Age: 75 Year
  Sex: Male
  Weight: 52 kg

DRUGS (33)
  1. BEDAQUILINE [Suspect]
     Active Substance: BEDAQUILINE
     Indication: Pulmonary tuberculosis
     Route: 048
     Dates: start: 20180628, end: 20180701
  2. BEDAQUILINE [Suspect]
     Active Substance: BEDAQUILINE
     Dosage: AT BEDTIME
     Route: 048
     Dates: start: 20180702, end: 20180802
  3. BEDAQUILINE [Suspect]
     Active Substance: BEDAQUILINE
     Route: 048
     Dates: start: 20180803, end: 20180905
  4. CLOFAZIMINE [Suspect]
     Active Substance: CLOFAZIMINE
     Indication: Pulmonary tuberculosis
     Dosage: UNKNOWN
     Route: 048
     Dates: start: 20171218, end: 2018
  5. CLOFAZIMINE [Suspect]
     Active Substance: CLOFAZIMINE
     Indication: Pulmonary tuberculosis
     Route: 048
     Dates: start: 20180628, end: 20181213
  6. AMINOSALICYLATE CALCIUM [Suspect]
     Active Substance: AMINOSALICYLATE CALCIUM
     Indication: Pulmonary tuberculosis
     Dosage: DOSE UNKNOWN
     Route: 048
  7. DELAMANID [Concomitant]
     Active Substance: DELAMANID
     Indication: Pulmonary tuberculosis
     Dosage: UNKNOWN
     Route: 048
     Dates: start: 20171113, end: 2018
  8. DELAMANID [Concomitant]
     Active Substance: DELAMANID
     Dosage: UNKNOWN
     Route: 048
     Dates: start: 20180628
  9. DELAMANID [Concomitant]
     Active Substance: DELAMANID
     Route: 048
     Dates: end: 20181213
  10. LINEZOLID [Concomitant]
     Active Substance: LINEZOLID
     Indication: Pulmonary tuberculosis
     Dosage: UNKNOWN
     Route: 065
     Dates: start: 20171017, end: 20171127
  11. LINEZOLID [Concomitant]
     Active Substance: LINEZOLID
     Indication: Pulmonary tuberculosis
     Dosage: UNKNOWN
     Route: 065
     Dates: start: 20180222, end: 20180430
  12. LINEZOLID [Concomitant]
     Active Substance: LINEZOLID
     Indication: Pulmonary tuberculosis
     Dosage: UNKNOWN
     Route: 065
     Dates: start: 20180628
  13. LINEZOLID [Concomitant]
     Active Substance: LINEZOLID
     Route: 048
     Dates: start: 20190604, end: 20190705
  14. LINEZOLID [Concomitant]
     Active Substance: LINEZOLID
     Route: 065
     Dates: start: 20190706, end: 20190717
  15. ENSURE [Concomitant]
     Active Substance: AMINO ACIDS\DEXTROSE\ELECTROLYTES NOS\SOYBEAN OIL\VITAMINS
     Indication: Product used for unknown indication
     Dosage: UNKNOWN
     Route: 048
  16. AUGMENTIN [Concomitant]
     Active Substance: AMOXICILLIN\CLAVULANATE POTASSIUM
     Indication: Pulmonary tuberculosis
     Dosage: UNKNOWN
     Route: 048
     Dates: start: 20171017, end: 20171127
  17. AUGMENTIN [Concomitant]
     Active Substance: AMOXICILLIN\CLAVULANATE POTASSIUM
     Dosage: UNKNOWN
     Route: 048
     Dates: start: 20171201, end: 20180320
  18. AUGMENTIN [Concomitant]
     Active Substance: AMOXICILLIN\CLAVULANATE POTASSIUM
     Dosage: UNKNOWN
     Route: 048
     Dates: start: 20180405, end: 2018
  19. AUGMENTIN [Concomitant]
     Active Substance: AMOXICILLIN\CLAVULANATE POTASSIUM
     Route: 048
     Dates: start: 2018, end: 20180907
  20. AUGMENTIN [Concomitant]
     Active Substance: AMOXICILLIN\CLAVULANATE POTASSIUM
     Route: 048
     Dates: end: 20181213
  21. MIYA-BM [Concomitant]
     Active Substance: CLOSTRIDIUM BUTYRICUM SPORES STRAIN M-55
     Indication: Prophylaxis
     Route: 048
  22. REBAMIPIDE [Concomitant]
     Active Substance: REBAMIPIDE
     Indication: Prophylaxis
     Route: 048
  23. TAMSULOSIN HYDROCHLORIDE [Concomitant]
     Active Substance: TAMSULOSIN HYDROCHLORIDE
     Indication: Dysuria
     Route: 048
  24. CALCIUM POLYSTYRENE SULFONATE [Concomitant]
     Active Substance: CALCIUM POLYSTYRENE SULFONATE
     Indication: Hyperkalaemia
     Route: 048
  25. ZOLPIDEM TARTRATE [Concomitant]
     Active Substance: ZOLPIDEM TARTRATE
     Indication: Insomnia
     Route: 048
  26. MOSAPRIDE CITRATE [Concomitant]
     Active Substance: MOSAPRIDE CITRATE
     Indication: Decreased appetite
     Route: 048
  27. CARBOHYDRATES\FATTY ACIDS\MINERALS\PROTEIN\VITAMINS [Concomitant]
     Active Substance: CARBOHYDRATES\FATTY ACIDS\MINERALS\PROTEIN\VITAMINS
     Indication: Decreased appetite
     Route: 048
  28. BETAMETHASONE BUTYRATE PROPIONATE [Concomitant]
     Active Substance: BETAMETHASONE BUTYRATE PROPIONATE
     Indication: Pruritus
     Dosage: 2-3 TIMES DAILY,Q.S.
     Route: 061
     Dates: start: 2018
  29. GLYCOSAMINOGLYCANS [Concomitant]
     Active Substance: GLYCOSAMINOGLYCANS
     Indication: Pruritus
     Dosage: 2-3 TIMES DAILY,Q.S.
     Route: 061
     Dates: start: 2018
  30. CYCLOSERINE [Concomitant]
     Active Substance: CYCLOSERINE
     Indication: Pulmonary tuberculosis
     Route: 048
     Dates: start: 20171207, end: 20180320
  31. CYCLOSERINE [Concomitant]
     Active Substance: CYCLOSERINE
     Route: 048
     Dates: start: 20190604, end: 20190705
  32. CILASTATIN SODIUM\IMIPENEM [Concomitant]
     Active Substance: CILASTATIN SODIUM\IMIPENEM
     Indication: Pulmonary tuberculosis
     Route: 065
     Dates: start: 20190604, end: 20190717
  33. AMIKACIN SULFATE [Concomitant]
     Active Substance: AMIKACIN SULFATE
     Indication: Pulmonary tuberculosis
     Route: 065
     Dates: start: 20190706, end: 20190717

REACTIONS (7)
  - Pulmonary tuberculosis [Fatal]
  - Drug resistance [Not Recovered/Not Resolved]
  - Vomiting [Recovering/Resolving]
  - Nausea [Not Recovered/Not Resolved]
  - Decreased appetite [Not Recovered/Not Resolved]
  - Malnutrition [Unknown]
  - Skin atrophy [Unknown]

NARRATIVE: CASE EVENT DATE: 20180628
